FAERS Safety Report 24788080 (Version 1)
Quarter: 2024Q4

REPORT INFORMATION
  Report Type: Spontaneous
  Country: US (occurrence: US)
  Receive Date: 20241230
  Receipt Date: 20241230
  Transmission Date: 20250114
  Serious: Yes (Life-Threatening, Hospitalization)
  Sender: TORRENT PHARMA INC.
  Company Number: US-MLMSERVICE-20241213-PI300821-00330-2

PATIENT
  Sex: Male
  Weight: 2 kg

DRUGS (1)
  1. VENLAFAXINE [Suspect]
     Active Substance: VENLAFAXINE HYDROCHLORIDE
     Indication: Product used for unknown indication
     Dosage: MOTHER DOSE-DURING THE FIRST 6 WEEKS OF PREGNANCY, 150 MG PER DAY, 6 WEEKS
     Route: 064

REACTIONS (2)
  - Drug withdrawal syndrome neonatal [Recovered/Resolved]
  - Foetal exposure during pregnancy [Unknown]
